FAERS Safety Report 4520304-1 (Version None)
Quarter: 2004Q4

REPORT INFORMATION
  Report Type: 
  Country: None (occurrence: None)
  Receive Date: 20041203
  Receipt Date: 20041203
  Transmission Date: 20050328
  Serious: Yes (Other)
  Sender: FDA-Public Use
  Company Number: None

PATIENT
  Age: 63 Year
  Sex: Female
  Weight: 92.9874 kg

DRUGS (1)
  1. ACTIGALL [Suspect]
     Indication: BILIARY CIRRHOSIS PRIMARY
     Dosage: 300 MG PO TID
     Route: 048
     Dates: start: 19970701

REACTIONS (4)
  - HEADACHE [None]
  - NAUSEA [None]
  - PHARMACEUTICAL PRODUCT COMPLAINT [None]
  - RASH [None]
